FAERS Safety Report 4719112-8 (Version None)
Quarter: 2005Q3

REPORT INFORMATION
  Report Type: 
  Country: None (occurrence: None)
  Receive Date: 20050719
  Receipt Date: 20050701
  Transmission Date: 20060218
  Serious: Yes (Death)
  Sender: FDA-Public Use
  Company Number: 2005-0008482

PATIENT
  Age: 20 Day
  Sex: Female

DRUGS (6)
  1. VIREAD [Suspect]
     Dosage: TRANSPLACENTAL
     Route: 064
     Dates: start: 20030203, end: 20040906
  2. ATAZANAVIR (ATAZANAVIR) [Concomitant]
  3. ZIDOVUDINE [Concomitant]
  4. DIDANOSINE [Concomitant]
  5. ZIDOVUDINE [Concomitant]
  6. NELFINAVIR (NELFINAVIR) [Concomitant]

REACTIONS (13)
  - ATELECTASIS [None]
  - CARDIO-RESPIRATORY ARREST NEONATAL [None]
  - CONGENITAL HIV INFECTION [None]
  - DEATH NEONATAL [None]
  - DRUG EXPOSURE DURING PREGNANCY [None]
  - NEONATAL PNEUMONIA [None]
  - PERIPHERAL COLDNESS [None]
  - PNEUMOCYSTIS JIROVECI PNEUMONIA [None]
  - PREMATURE BABY [None]
  - PREMATURE RUPTURE OF MEMBRANES [None]
  - PULMONARY OEDEMA NEONATAL [None]
  - PULSE ABSENT [None]
  - SUDDEN DEATH [None]
